FAERS Safety Report 5155034-9 (Version None)
Quarter: 2006Q4

REPORT INFORMATION
  Report Type: 
  Country: None (occurrence: None)
  Receive Date: 20061121
  Receipt Date: 20050926
  Transmission Date: 20070319
  Serious: Yes (Other)
  Sender: FDA-Public Use
  Company Number: PHEH2005US10680

PATIENT
  Age: 59 Year
  Sex: Male
  Weight: 101.13 kg

DRUGS (21)
  1. ANZEMET [Concomitant]
     Dosage: 100 MG, QMO
     Route: 042
     Dates: start: 20020116
  2. DECADRON /NET/ [Concomitant]
     Dosage: 8 MG, QMO
     Route: 042
     Dates: start: 20020116
  3. INFLUENZA VACCINE [Concomitant]
  4. ROCALTROL [Concomitant]
  5. CALCITRIOL [Concomitant]
  6. PROSCAR [Concomitant]
     Dates: start: 20030716
  7. ZOMETA [Suspect]
     Indication: METASTASES TO BONE
     Dosage: 4 MG, QMO
     Dates: start: 20010206, end: 20040128
  8. TAXOTERE [Concomitant]
     Dosage: 80 MG, QW
     Route: 042
     Dates: start: 20020109, end: 20030101
  9. VICODIN [Concomitant]
     Indication: PAIN
     Dosage: UNK, PRN
  10. OXYCONTIN [Concomitant]
  11. MS CONTIN [Concomitant]
  12. AMBIEN [Concomitant]
     Indication: SLEEP DISORDER
  13. HORMONES [Concomitant]
  14. LUPRON [Concomitant]
     Indication: PROSTATE CANCER
     Dosage: 4 MG, QW
     Route: 030
     Dates: start: 20020422
  15. CASODEX [Concomitant]
     Indication: PROSTATE CANCER
     Dosage: 50 MG, QD
     Route: 048
  16. EFFEXOR [Concomitant]
     Indication: DEPRESSION
     Dosage: 37.5 MG, BID
     Route: 048
  17. CARDURA /JOR/ [Concomitant]
     Dosage: 4 MG, BID
     Route: 048
     Dates: end: 20030716
  18. SENOKOT /USA/ [Concomitant]
  19. MELATONIN [Concomitant]
  20. DURAGESIC-100 [Concomitant]
     Dosage: UNK, PRN
  21. NEXIUM [Concomitant]

REACTIONS (40)
  - ANDROGEN DEFICIENCY [None]
  - ASTHENIA [None]
  - BACK PAIN [None]
  - BONE DEBRIDEMENT [None]
  - BONE DENSITY DECREASED [None]
  - BONE DISORDER [None]
  - BONE PAIN [None]
  - CANDIDIASIS [None]
  - CHOKING [None]
  - CHRONIC OBSTRUCTIVE PULMONARY DISEASE [None]
  - COUGH [None]
  - DEPRESSION [None]
  - DYSGEUSIA [None]
  - DYSPHONIA [None]
  - DYSPNOEA [None]
  - DYSPNOEA EXERTIONAL [None]
  - ENDODONTIC PROCEDURE [None]
  - FATIGUE [None]
  - GINGIVAL PAIN [None]
  - GINGIVAL SWELLING [None]
  - HAEMOPTYSIS [None]
  - HOT FLUSH [None]
  - LARYNGOSPASM [None]
  - MUSCLE SPASMS [None]
  - NASAL CONGESTION [None]
  - NASAL ULCER [None]
  - OSTEONECROSIS [None]
  - PHARYNGOLARYNGEAL PAIN [None]
  - PLEURITIC PAIN [None]
  - PNEUMONIA [None]
  - POSTNASAL DRIP [None]
  - PYREXIA [None]
  - SEQUESTRECTOMY [None]
  - TONGUE INJURY [None]
  - TOOTH DISORDER [None]
  - TOOTH EXTRACTION [None]
  - TOOTH INFECTION [None]
  - TOOTHACHE [None]
  - UPPER RESPIRATORY TRACT INFECTION [None]
  - WHEEZING [None]
